FAERS Safety Report 16050434 (Version 9)
Quarter: 2020Q4

REPORT INFORMATION
  Report Type: Spontaneous
  Country: DE (occurrence: DE)
  Receive Date: 20190308
  Receipt Date: 20201016
  Transmission Date: 20210113
  Serious: Yes (Hospitalization, Other)
  Sender: FDA-Public Use
  Company Number: DE-AUROBINDO-AUR-APL-2019-011592

PATIENT
  Sex: Female
  Weight: 80 kg

DRUGS (25)
  1. VALSARTAN HEXAL [Suspect]
     Active Substance: VALSARTAN
     Dosage: UNK
     Route: 065
     Dates: start: 20180320
  2. PANTOPRAZOL HEXAL [Concomitant]
     Active Substance: PANTOPRAZOLE
     Indication: PRODUCT USED FOR UNKNOWN INDICATION
     Dosage: 40 MILLIGRAM, ONCE A DAY
     Route: 065
  3. PRADAXA [Concomitant]
     Active Substance: DABIGATRAN ETEXILATE MESYLATE
     Indication: PRODUCT USED FOR UNKNOWN INDICATION
     Dosage: 150 MILLIGRAM, TWO TIMES A DAY APPROXIMATELY STARTED IN 2015, ONE CAPSULE MORNING AND EVENING)
     Route: 065
     Dates: start: 201910
  4. CANDESARTAN. [Concomitant]
     Active Substance: CANDESARTAN
     Indication: PRODUCT USED FOR UNKNOWN INDICATION
     Dosage: 16 MILLIGRAM, ONCE A DAY MORNING
     Route: 065
  5. GRANUFINK FEMINA [Concomitant]
     Indication: PRODUCT USED FOR UNKNOWN INDICATION
     Dosage: UNK
     Route: 065
  6. AMLODIPINE [Concomitant]
     Active Substance: AMLODIPINE BESYLATE
     Indication: PRODUCT USED FOR UNKNOWN INDICATION
     Dosage: 5 MILLIGRAM, TWO TIMES A DAY
     Route: 065
  7. VALSARTAN HEXAL [Suspect]
     Active Substance: VALSARTAN
     Indication: PRODUCT USED FOR UNKNOWN INDICATION
     Dosage: 1 DOSAGE FORM, ONCE A DAY 160/2,5 MG
     Route: 065
     Dates: start: 20150901, end: 20180320
  8. VALSARTAN HEXAL COMP [Suspect]
     Active Substance: HYDROCHLOROTHIAZIDE\VALSARTAN
     Indication: PRODUCT USED FOR UNKNOWN INDICATION
     Dosage: 1 DOSAGE FORM, ONCE A DAY (160/12.5MG ONCE DAILY)
     Route: 065
     Dates: start: 201711, end: 201810
  9. AMLODIPIN HEXAL [Concomitant]
     Dosage: 5 MILLIGRAM, TWO TIMES A DAY
     Route: 065
  10. ABOMIN [Concomitant]
     Indication: ASTHMA
     Dosage: 5 GTT DROPS (3 TIMES IN WATER)
     Route: 065
  11. METAMIZOLE [Concomitant]
     Active Substance: METAMIZOLE
     Indication: PRODUCT USED FOR UNKNOWN INDICATION
     Dosage: 40 GTT DROPS, FOUR TIMES/DAY
     Route: 065
  12. VALSARTAN. [Suspect]
     Active Substance: VALSARTAN
     Dosage: UNK, ONCE A DAY
     Route: 065
     Dates: start: 20180320
  13. CODIOVAN [Concomitant]
     Active Substance: HYDROCHLOROTHIAZIDE\VALSARTAN
     Indication: PRODUCT USED FOR UNKNOWN INDICATION
     Dosage: 1 DOSAGE FORM, ONCE A DAY IN THE MORNING
     Route: 065
  14. GLUCOSAMINE SULFATE [Concomitant]
     Active Substance: GLUCOSAMINE SULFATE
     Indication: ASTHMA
     Dosage: 5 GTT DROPS, 3 TIMES A DAY
     Route: 065
  15. VIANI [Concomitant]
     Active Substance: FLUTICASONE PROPIONATE\SALMETEROL XINAFOATE
     Indication: PRODUCT USED FOR UNKNOWN INDICATION
     Dosage: 250 MILLIGRAM, 2X 1 PUFF REGULARLY
     Route: 065
  16. DIPONIUM;METAMIZOLE [Concomitant]
     Indication: PRODUCT USED FOR UNKNOWN INDICATION
     Dosage: 40 GTT DROPS, FOUR TIMES/DAY
     Route: 065
  17. PRADAXA [Concomitant]
     Active Substance: DABIGATRAN ETEXILATE MESYLATE
     Dosage: 300 MILLIGRAM, ONCE A DAY 150 UNK (ONE CAPSULE
     Route: 065
     Dates: start: 20191026
  18. NOVAMINSULFON-RATIOPHARM [Concomitant]
     Active Substance: METAMIZOLE
     Indication: PRODUCT USED FOR UNKNOWN INDICATION
     Dosage: 500 MILLIGRAM,AS NEEDED (UP TO 2 TABLETS 4TIMES PER DAY)
     Route: 065
  19. AMLODIPIN HEXAL [Concomitant]
     Indication: PRODUCT USED FOR UNKNOWN INDICATION
     Dosage: 5 MILLIGRAM, ONCE A DAY
     Route: 065
  20. AMLODIPIN 1 A PHARMA [Concomitant]
     Active Substance: AMLODIPINE BESYLATE
     Indication: PRODUCT USED FOR UNKNOWN INDICATION
     Dosage: 5 MILLIGRAM, ONCE A DAY MORNING) (APPROXIMATELY STARTED IN 2000
     Route: 065
  21. CLEXANE [Concomitant]
     Active Substance: ENOXAPARIN SODIUM
     Indication: PRODUCT USED FOR UNKNOWN INDICATION
     Dosage: 8000 INTERNATIONAL UNIT, TWO TIMES A DAY
     Route: 065
     Dates: start: 201910, end: 20191025
  22. VALSARTAN. [Suspect]
     Active Substance: VALSARTAN
     Indication: PRODUCT USED FOR UNKNOWN INDICATION
     Dosage: UNK (80 OT, UNK)
     Route: 065
     Dates: start: 20150527
  23. TORASEMIDE [Concomitant]
     Active Substance: TORSEMIDE
     Indication: PRODUCT USED FOR UNKNOWN INDICATION
     Dosage: 5 MILLIGRAM, ONCE A DAY
     Route: 065
  24. PIRACETAM [Concomitant]
     Active Substance: PIRACETAM
     Indication: PRODUCT USED FOR UNKNOWN INDICATION
     Dosage: UNK
     Route: 065
  25. VALSARTAN HEXAL COMP [Suspect]
     Active Substance: HYDROCHLOROTHIAZIDE\VALSARTAN
     Dosage: 1 DOSAGE FORM, ONCE A DAY 160 MG, 12.5 MG
     Route: 065
     Dates: start: 201703, end: 201709

REACTIONS (37)
  - Diverticulum intestinal [Unknown]
  - Goitre [Unknown]
  - Haemorrhage [Unknown]
  - Spinal osteoarthritis [Unknown]
  - Right ventricular dysfunction [Unknown]
  - Dizziness [Unknown]
  - Granuloma [Unknown]
  - Urinary incontinence [Unknown]
  - Dyspnoea exertional [Unknown]
  - Intestinal haemorrhage [Recovered/Resolved]
  - Haemorrhoids [Unknown]
  - Tricuspid valve disease [Unknown]
  - Skin cancer [Unknown]
  - Hypertension [Unknown]
  - Rash erythematous [Not Recovered/Not Resolved]
  - Cardiomegaly [Unknown]
  - Ventricular extrasystoles [Unknown]
  - Hepatic steatosis [Unknown]
  - Hypocalcaemia [Unknown]
  - Nausea [Unknown]
  - Allergic reaction to excipient [Unknown]
  - Asthma [Unknown]
  - Haematochezia [Unknown]
  - Proctitis [Unknown]
  - Hypersensitivity [Unknown]
  - Arteriosclerosis coronary artery [Unknown]
  - Vomiting [Unknown]
  - Hyperuricaemia [Unknown]
  - Renal cyst [Unknown]
  - Follicular thyroid cancer [Unknown]
  - Aortic valve incompetence [Unknown]
  - Pulmonary valve incompetence [Unknown]
  - Coronary artery disease [Unknown]
  - Rectal adenocarcinoma [Unknown]
  - Mitral valve incompetence [Unknown]
  - Right atrial enlargement [Unknown]
  - Skin disorder [Unknown]

NARRATIVE: CASE EVENT DATE: 2018
